FAERS Safety Report 9286323 (Version 1)
Quarter: 2013Q2

REPORT INFORMATION
  Report Type: Spontaneous
  Country: US (occurrence: None)
  Receive Date: 20130503
  Receipt Date: 20130503
  Transmission Date: 20140414
  Serious: Yes (Other)
  Sender: FDA-Public Use
  Company Number: 2013/096

PATIENT
  Age: 46 Year
  Sex: Female

DRUGS (4)
  1. CEPHALEXIN [Suspect]
     Indication: POSTOPERATIVE CARE
     Dosage: Q 6 HOURS
  2. CEPHALEXIN [Suspect]
     Indication: PROPHYLAXIS
     Dosage: Q 6 HOURS
  3. CEPHAZOLIN SODIUM [Suspect]
     Indication: POSTOPERATIVE CARE
     Route: 042
  4. CEPHAZOLIN SODIUM [Suspect]
     Indication: PROPHYLAXIS
     Route: 042

REACTIONS (3)
  - Serratia infection [None]
  - Acne [None]
  - Folliculitis [None]
